FAERS Safety Report 15239567 (Version 1)
Quarter: 2018Q3

REPORT INFORMATION
  Report Type: Report from Study
  Country: FR (occurrence: FR)
  Receive Date: 20180803
  Receipt Date: 20180803
  Transmission Date: 20181010
  Serious: Yes (Other)
  Sender: FDA-Public Use
  Company Number: FR-SHIRE-FR201829106

PATIENT

DRUGS (8)
  1. 6?MERCAPTOPURINE MONOHYDRATE [Suspect]
     Active Substance: MERCAPTOPURINE
     Indication: ACUTE LYMPHOCYTIC LEUKAEMIA
     Dosage: 110 MG, PER DAY (D1 TO D14, D29 TO D42)
     Route: 048
     Dates: start: 20180705
  2. CYCLOPHOSPHAMIDE. [Suspect]
     Active Substance: CYCLOPHOSPHAMIDE
     Indication: ACUTE LYMPHOCYTIC LEUKAEMIA
     Dosage: 1760 MG, PER DAY (D1, D29)
     Route: 042
     Dates: start: 20180705
  3. HYDROCORTISONE. [Suspect]
     Active Substance: HYDROCORTISONE
     Indication: ACUTE LYMPHOCYTIC LEUKAEMIA
     Dosage: 15 MG, PER DAY (D3, D31)
     Route: 042
     Dates: start: 20180707
  4. METHOTREXATE. [Suspect]
     Active Substance: METHOTREXATE
     Indication: ACUTE LYMPHOCYTIC LEUKAEMIA
     Dosage: 15 MG, PER DAY (D3, D31)
     Route: 037
     Dates: start: 20180707
  5. PEGASPARGASE [Suspect]
     Active Substance: PEGASPARGASE
     Indication: ACUTE LYMPHOCYTIC LEUKAEMIA
     Dosage: 4400 IU,
     Route: 042
     Dates: start: 20180719, end: 20180719
  6. CYTARABINE. [Suspect]
     Active Substance: CYTARABINE
     Indication: ACUTE LYMPHOCYTIC LEUKAEMIA
     Dosage: 30 MG, PER DAY (D3, D31)
     Route: 037
     Dates: start: 20180707
  7. CYTARABINE. [Suspect]
     Active Substance: CYTARABINE
     Dosage: 132 MG, PER DAY (D3 TO D6, D10 TO D13)
     Route: 042
     Dates: start: 20180707
  8. VINCRISTINE [Suspect]
     Active Substance: VINCRISTINE
     Indication: ACUTE LYMPHOCYTIC LEUKAEMIA
     Dosage: 2 MG, PER DAY (D15, D22, D43, D50)
     Route: 042
     Dates: start: 20180719

REACTIONS (1)
  - Drug hypersensitivity [Recovered/Resolved]

NARRATIVE: CASE EVENT DATE: 20180719
